FAERS Safety Report 7635881-1 (Version None)
Quarter: 2011Q3

REPORT INFORMATION
  Report Type: 
  Country: None (occurrence: None)
  Receive Date: 20110726
  Receipt Date: 20110225
  Transmission Date: 20111222
  Serious: Yes (Other)
  Sender: FDA-Public Use
  Company Number: US-BAYER-2011-064305

PATIENT
  Age: 70 Year
  Sex: Male
  Weight: 70.748 kg

DRUGS (1)
  1. PHILLIPS' LIQUID GELS STOOL SOFTENER [Suspect]
     Indication: CONSTIPATION
     Dosage: 1 DF, QD, BOTTLE COUNT 30S
     Route: 048
     Dates: start: 20110218, end: 20110218

REACTIONS (4)
  - FOREIGN BODY [None]
  - HAEMATOCHEZIA [None]
  - CHOKING [None]
  - DYSPNOEA [None]
